FAERS Safety Report 7204571-1 (Version None)
Quarter: 2010Q4

REPORT INFORMATION
  Report Type: 
  Country: None (occurrence: None)
  Receive Date: 20101230
  Receipt Date: 20101222
  Transmission Date: 20110411
  Serious: Yes (Hospitalization, Other)
  Sender: FDA-Public Use
  Company Number: PHHO2010NL14287

PATIENT
  Sex: Female
  Weight: 72 kg

DRUGS (12)
  1. MYCOPHENOLIC ACID [Suspect]
     Indication: GRAFT VERSUS HOST DISEASE
     Dosage: 2160 MG
     Route: 048
     Dates: start: 20100527, end: 20100630
  2. SANDIMMUNE [Suspect]
     Indication: GRAFT VERSUS HOST DISEASE
     Dosage: 300 MG
     Route: 048
     Dates: start: 20100524, end: 20100705
  3. SANDIMMUNE [Suspect]
     Dosage: UNK
     Dates: end: 20100830
  4. SANDIMMUNE [Suspect]
     Dosage: UNK
     Dates: start: 20100831
  5. STEDIRIL [Suspect]
  6. COTRIM [Suspect]
  7. VALACICLOVIR [Suspect]
  8. PREDNISONE [Concomitant]
  9. NYSTATIN [Concomitant]
     Indication: ORAL CANDIDIASIS
  10. ALENDRONINEZUUR [Concomitant]
  11. CALCIUM CARBONATE [Concomitant]
  12. VITAMIN D3 [Suspect]

REACTIONS (5)
  - BLOOD CREATININE INCREASED [None]
  - GRAFT VERSUS HOST DISEASE [None]
  - HEPATIC ENZYME INCREASED [None]
  - HEPATOTOXICITY [None]
  - NEPHROPATHY TOXIC [None]
